FAERS Safety Report 7264541-4 (Version None)
Quarter: 2011Q1

REPORT INFORMATION
  Report Type: 
  Country: None (occurrence: None)
  Receive Date: 20110131
  Receipt Date: 20110125
  Transmission Date: 20110831
  Serious: No
  Sender: FDA-Public Use
  Company Number: US-PFIZER INC-2011017858

PATIENT
  Sex: Female
  Weight: 42.177 kg

DRUGS (3)
  1. PRISTIQ [Suspect]
     Indication: FIBROMYALGIA
     Dosage: 50 MG, 1X/DAY
     Route: 048
     Dates: start: 20110121
  2. PRISTIQ [Suspect]
     Indication: DEPRESSION
  3. BENTYL [Concomitant]
     Indication: GASTRIC DISORDER
     Dosage: UNK

REACTIONS (1)
  - DRUG INEFFECTIVE [None]
